FAERS Safety Report 13054189 (Version 1)
Quarter: 2016Q4

REPORT INFORMATION
  Report Type: Spontaneous
  Country: US (occurrence: US)
  Receive Date: 20161222
  Receipt Date: 20161222
  Transmission Date: 20170207
  Serious: No
  Sender: FDA-Public Use
  Company Number: None

PATIENT

DRUGS (2)
  1. MIRABEGRON [Suspect]
     Active Substance: MIRABEGRON
  2. VENLAFAXINE [Suspect]
     Active Substance: VENLAFAXINE HYDROCHLORIDE

REACTIONS (4)
  - Blood pressure systolic increased [None]
  - Supraventricular tachycardia [None]
  - Ventricular tachycardia [None]
  - Drug interaction [None]
